FAERS Safety Report 4610676-1 (Version None)
Quarter: 2005Q2

REPORT INFORMATION
  Report Type: 
  Country: None (occurrence: None)
  Receive Date: 20050228
  Receipt Date: 20040505
  Transmission Date: 20051028
  Serious: No
  Sender: FDA-Public Use
  Company Number: 206394

PATIENT
  Age: 14 Year
  Sex: Female
  Weight: 46.2 kg

DRUGS (3)
  1. NUTROPIN [Suspect]
     Indication: TURNER'S SYNDROME
     Dosage: 2.6 MG, 6/WEEK, SUBCUTANEOUS
     Route: 058
     Dates: start: 19990712
  2. ADDERALL [Concomitant]
  3. GUANFACINE (GUANFACINE HYDROCHLORIDE) [Concomitant]

REACTIONS (1)
  - SCOLIOSIS [None]
